FAERS Safety Report 13191093 (Version 1)
Quarter: 2017Q1

REPORT INFORMATION
  Report Type: Spontaneous
  Country: PT (occurrence: PT)
  Receive Date: 20170207
  Receipt Date: 20170207
  Transmission Date: 20170428
  Serious: Yes (Other)
  Sender: FDA-Public Use
  Company Number: PT-009507513-1702PRT001937

PATIENT
  Age: 49 Year
  Sex: Female
  Weight: 89.5 kg

DRUGS (3)
  1. SITAGLIPTIN PHOSPHATE [Suspect]
     Active Substance: SITAGLIPTIN PHOSPHATE
     Indication: DIABETES MELLITUS
     Dosage: 100 MG/DAY
     Route: 048
  2. GLICLAZIDE [Suspect]
     Active Substance: GLICLAZIDE
     Indication: DIABETES MELLITUS
     Dosage: 120 MG/DAY
     Route: 048
  3. METFORMIN [Suspect]
     Active Substance: METFORMIN HYDROCHLORIDE
     Indication: DIABETES MELLITUS
     Dosage: 2500 MG/DAY
     Route: 048

REACTIONS (2)
  - Drug ineffective [Recovering/Resolving]
  - Diabetes mellitus inadequate control [Recovering/Resolving]
